FAERS Safety Report 10854748 (Version 1)
Quarter: 2015Q1

REPORT INFORMATION
  Report Type: Spontaneous
  Country: JP (occurrence: None)
  Receive Date: 20150218
  Receipt Date: 20150218
  Transmission Date: 20150721
  Serious: Yes (Hospitalization)
  Sender: FDA-Public Use
  Company Number: INT_00696_2015

PATIENT
  Age: 40 Year
  Sex: Female

DRUGS (2)
  1. PACLITAXEL (PACLITAXEL) (HQ SPECIALTY) [Suspect]
     Active Substance: PACLITAXEL
     Indication: CERVIX CARCINOMA STAGE III
  2. CISPLATIN (CISPLATIN) [Suspect]
     Active Substance: CISPLATIN
     Indication: CERVIX CARCINOMA STAGE III

REACTIONS (13)
  - Influenza like illness [None]
  - Blood pressure decreased [None]
  - Abdominal distension [None]
  - Urine output decreased [None]
  - Decreased appetite [None]
  - Peritonitis [None]
  - Oropharyngeal pain [None]
  - Abdominal tenderness [None]
  - Respiratory rate increased [None]
  - Peripheral coldness [None]
  - Toxic shock syndrome streptococcal [None]
  - Myalgia [None]
  - Heart rate increased [None]
